FAERS Safety Report 6731227-1 (Version None)
Quarter: 2010Q2

REPORT INFORMATION
  Report Type: 
  Country: None (occurrence: None)
  Receive Date: 20100518
  Receipt Date: 20100512
  Transmission Date: 20101027
  Serious: Yes (Other)
  Sender: FDA-Public Use
  Company Number: US-ABBOTT-10P-163-0638758-00

PATIENT
  Sex: Female
  Weight: 53.572 kg

DRUGS (7)
  1. LUPRON DEPOT [Suspect]
     Indication: ENDOMETRIOSIS
     Dates: start: 20100126, end: 20100401
  2. IBUPROFEN [Concomitant]
     Indication: LOCAL SWELLING
     Dates: start: 20090101
  3. TRAZODONE HCL [Concomitant]
     Indication: INSOMNIA
  4. BLACK COHOSH [Concomitant]
     Indication: MENOPAUSAL SYMPTOMS
  5. LIDOCAINE [Concomitant]
     Indication: HYPOAESTHESIA
     Dates: start: 20100101
  6. LEXAPRO [Concomitant]
     Indication: DEPRESSION
  7. MULTI-VITAMIN [Concomitant]
     Indication: DRUG USE FOR UNKNOWN INDICATION

REACTIONS (4)
  - VAGINAL HAEMORRHAGE [None]
  - VAGINAL LACERATION [None]
  - VULVOVAGINAL DRYNESS [None]
  - VULVOVAGINAL PAIN [None]
